FAERS Safety Report 24455016 (Version 2)
Quarter: 2024Q4

REPORT INFORMATION
  Report Type: Report from Study
  Country: US (occurrence: US)
  Receive Date: 20241017
  Receipt Date: 20241018
  Transmission Date: 20250114
  Serious: No
  Sender: ROCHE
  Company Number: US-ROCHE-3479295

PATIENT
  Age: 59 Year
  Sex: Female
  Weight: 81.65 kg

DRUGS (24)
  1. RITUXAN [Suspect]
     Active Substance: RITUXIMAB
     Indication: Rheumatoid arthritis
     Dosage: THE PATIENT STATED SHE THINKS IT IS ONCE EVERY 3 MONTHS AND ANTICIPATED DATE OF TREATMENT WAS ON 20/
     Route: 042
  2. RITUXAN [Suspect]
     Active Substance: RITUXIMAB
     Indication: Fibromyalgia
  3. ACETAMINOPHEN [Concomitant]
     Active Substance: ACETAMINOPHEN
  4. PREGABALIN [Concomitant]
     Active Substance: PREGABALIN
  5. HYDROXYCHLOROQUINE [Concomitant]
     Active Substance: HYDROXYCHLOROQUINE
  6. LEFLUNOMIDE [Concomitant]
     Active Substance: LEFLUNOMIDE
  7. MUPIROCIN [Concomitant]
     Active Substance: MUPIROCIN
  8. XARELTO [Concomitant]
     Active Substance: RIVAROXABAN
  9. MORPHINE SULFATE [Concomitant]
     Active Substance: MORPHINE SULFATE
  10. OXYCODONE HYDROCHLORIDE [Concomitant]
     Active Substance: OXYCODONE HYDROCHLORIDE
  11. MESALAMINE [Concomitant]
     Active Substance: MESALAMINE
  12. CREON [Concomitant]
     Active Substance: PANCRELIPASE AMYLASE\PANCRELIPASE LIPASE\PANCRELIPASE PROTEASE
  13. AMLODIPINE BESYLATE [Concomitant]
     Active Substance: AMLODIPINE BESYLATE
  14. ALBUTEROL SULFATE [Concomitant]
     Active Substance: ALBUTEROL SULFATE
  15. ZINC OXIDE [Concomitant]
     Active Substance: ZINC OXIDE
  16. RIVAROXABAN [Concomitant]
     Active Substance: RIVAROXABAN
  17. CLONAZEPAM [Concomitant]
     Active Substance: CLONAZEPAM
  18. LIDODERM [Concomitant]
     Active Substance: LIDOCAINE
  19. PRAMIPEXOLE DIHYDROCHLORIDE [Concomitant]
     Active Substance: PRAMIPEXOLE DIHYDROCHLORIDE
  20. DICYCLOMINE HYDROCHLORIDE [Concomitant]
     Active Substance: DICYCLOMINE HYDROCHLORIDE
  21. ATENOLOL [Concomitant]
     Active Substance: ATENOLOL
  22. IPRATROPIUM [Concomitant]
     Active Substance: IPRATROPIUM
  23. FISH OIL [Concomitant]
     Active Substance: FISH OIL
  24. PRED FORTE [Concomitant]
     Active Substance: PREDNISOLONE ACETATE

REACTIONS (3)
  - Discomfort [Unknown]
  - Rheumatoid arthritis [Recovered/Resolved]
  - Peripheral swelling [Not Recovered/Not Resolved]

NARRATIVE: CASE EVENT DATE: 20230101
